FAERS Safety Report 18191113 (Version 4)
Quarter: 2023Q1

REPORT INFORMATION
  Report Type: Spontaneous
  Country: US (occurrence: None)
  Receive Date: 20200825
  Receipt Date: 20230217
  Transmission Date: 20230417
  Serious: Yes (Death, Other)
  Sender: FDA-Public Use
  Company Number: 2020SF04962

PATIENT
  Age: 24282 Day
  Sex: Female
  Weight: 52.6 kg

DRUGS (58)
  1. NEXIUM [Suspect]
     Active Substance: ESOMEPRAZOLE MAGNESIUM
     Indication: Gastrooesophageal reflux disease
     Route: 048
     Dates: start: 200601, end: 201812
  2. NEXIUM [Suspect]
     Active Substance: ESOMEPRAZOLE MAGNESIUM
     Indication: Gastrooesophageal reflux disease
     Route: 048
     Dates: start: 2006, end: 2018
  3. NEXIUM [Suspect]
     Active Substance: ESOMEPRAZOLE MAGNESIUM
     Indication: Gastrooesophageal reflux disease
     Dosage: GENERIC
     Route: 065
     Dates: end: 2017
  4. NEXIUM [Suspect]
     Active Substance: ESOMEPRAZOLE MAGNESIUM
     Indication: Gastrooesophageal reflux disease
     Route: 048
     Dates: start: 2007, end: 2017
  5. NEXIUM 24HR [Suspect]
     Active Substance: ESOMEPRAZOLE MAGNESIUM
     Indication: Gastrooesophageal reflux disease
     Route: 048
     Dates: start: 200601, end: 201812
  6. NEXIUM 24HR [Suspect]
     Active Substance: ESOMEPRAZOLE MAGNESIUM
     Indication: Gastrooesophageal reflux disease
     Route: 048
     Dates: start: 2014, end: 2018
  7. PRILOSEC OTC [Suspect]
     Active Substance: OMEPRAZOLE MAGNESIUM
     Indication: Gastrooesophageal reflux disease
     Route: 048
     Dates: start: 200601, end: 201812
  8. PRILOSEC OTC [Suspect]
     Active Substance: OMEPRAZOLE MAGNESIUM
     Indication: Gastrooesophageal reflux disease
     Route: 048
     Dates: start: 2006, end: 2018
  9. OMEPRAZOLE [Suspect]
     Active Substance: OMEPRAZOLE
     Indication: Gastrooesophageal reflux disease
     Dosage: GENERIC
     Route: 065
     Dates: start: 2012
  10. PREVACID [Suspect]
     Active Substance: LANSOPRAZOLE
     Indication: Gastrooesophageal reflux disease
     Route: 065
     Dates: start: 200601, end: 201812
  11. PREVACID [Suspect]
     Active Substance: LANSOPRAZOLE
     Indication: Gastrooesophageal reflux disease
     Route: 065
     Dates: start: 2006, end: 2018
  12. PREVACID [Suspect]
     Active Substance: LANSOPRAZOLE
     Indication: Gastrooesophageal reflux disease
     Dates: start: 2007, end: 2017
  13. PANTOPRAZOLE [Suspect]
     Active Substance: PANTOPRAZOLE
     Indication: Gastrooesophageal reflux disease
     Route: 065
     Dates: start: 2010, end: 2012
  14. LEVOFLOXACIN [Concomitant]
     Active Substance: LEVOFLOXACIN
  15. VICODIN [Concomitant]
     Active Substance: ACETAMINOPHEN\HYDROCODONE BITARTRATE
  16. ALPRAZOLAM [Concomitant]
     Active Substance: ALPRAZOLAM
  17. MONTELUKAST [Concomitant]
     Active Substance: MONTELUKAST SODIUM
  18. OXYBUTYNIN [Concomitant]
     Active Substance: OXYBUTYNIN
  19. AMOXICILLIN [Concomitant]
     Active Substance: AMOXICILLIN
  20. ROSUVASTATIN [Concomitant]
     Active Substance: ROSUVASTATIN
  21. VALSARTAN [Concomitant]
     Active Substance: VALSARTAN
  22. MIRTAZAPINE [Concomitant]
     Active Substance: MIRTAZAPINE
  23. CLOPIDOGREL [Concomitant]
     Active Substance: CLOPIDOGREL BISULFATE
  24. TRAMADOL [Concomitant]
     Active Substance: TRAMADOL
  25. ZOSTAVAX [Concomitant]
     Active Substance: VARICELLA-ZOSTER VIRUS STRAIN OKA/MERCK LIVE ANTIGEN
  26. CARVEDILOL [Concomitant]
     Active Substance: CARVEDILOL
  27. CIPROFLOXACIN [Concomitant]
     Active Substance: CIPROFLOXACIN
  28. PREVNAR [Concomitant]
     Active Substance: PNEUMOCOCCAL 7-VALENT CONJUGATE VACCINE (DIPHTHERIA CRM197 PROTEIN)
  29. TERCONAZOLE [Concomitant]
     Active Substance: TERCONAZOLE
  30. BETAMETHASONE [Concomitant]
     Active Substance: BETAMETHASONE
  31. TEMAZEPAM [Concomitant]
     Active Substance: TEMAZEPAM
  32. AMOXICILLIN\CLAVULANATE POTASSIUM [Concomitant]
     Active Substance: AMOXICILLIN\CLAVULANATE POTASSIUM
  33. PERPHENAZINE [Concomitant]
     Active Substance: PERPHENAZINE
  34. CITALOPRAM [Concomitant]
     Active Substance: CITALOPRAM HYDROBROMIDE
  35. TIZANIDINE [Concomitant]
     Active Substance: TIZANIDINE
  36. TERCONAZOLE [Concomitant]
     Active Substance: TERCONAZOLE
  37. GABAPENTIN [Concomitant]
     Active Substance: GABAPENTIN
  38. FLUCONAZOLE [Concomitant]
     Active Substance: FLUCONAZOLE
  39. CLOTRIMAZOLE AND BETAMETHASONE DIPROPIONATE [Concomitant]
     Active Substance: BETAMETHASONE\BETAMETHASONE DIPROPIONATE\CLOTRIMAZOLE
  40. CEPHALEXIN [Concomitant]
     Active Substance: CEPHALEXIN
  41. CYANOCOBALAMIN [Concomitant]
     Active Substance: CYANOCOBALAMIN
  42. FLUVIRIN NOS [Concomitant]
     Active Substance: INFLUENZA VIRUS VACCINE
  43. AMLODIPINE [Concomitant]
     Active Substance: AMLODIPINE BESYLATE
  44. RAMIPRIL [Concomitant]
     Active Substance: RAMIPRIL
  45. MELOXICAM [Concomitant]
     Active Substance: MELOXICAM
  46. CLINDAMYCIN [Concomitant]
     Active Substance: CLINDAMYCIN
  47. METRONIDAZOLE [Concomitant]
     Active Substance: METRONIDAZOLE
  48. MEGESTROL [Concomitant]
     Active Substance: MEGESTROL
  49. LISINOPRIL [Concomitant]
     Active Substance: LISINOPRIL
  50. KETOROLAC [Concomitant]
     Active Substance: KETOROLAC TROMETHAMINE
  51. SIMVASTATIN [Concomitant]
     Active Substance: SIMVASTATIN
  52. NITROGLYCERIN [Concomitant]
     Active Substance: NITROGLYCERIN
  53. METHYLPREDNISOLONE [Concomitant]
     Active Substance: METHYLPREDNISOLONE
  54. CYCLOBENZAPRINE [Concomitant]
     Active Substance: CYCLOBENZAPRINE
  55. AMPHETAMINE [Concomitant]
     Active Substance: AMPHETAMINE
  56. ZYRTEC [Concomitant]
     Active Substance: CETIRIZINE HYDROCHLORIDE
  57. ASPIRIN [Concomitant]
     Active Substance: ASPIRIN
  58. DICLOFENAC [Concomitant]
     Active Substance: DICLOFENAC

REACTIONS (2)
  - Death [Fatal]
  - Chronic kidney disease [Unknown]

NARRATIVE: CASE EVENT DATE: 20160817
